FAERS Safety Report 6512496-X (Version None)
Quarter: 2009Q4

REPORT INFORMATION
  Report Type: 
  Country: None (occurrence: None)
  Receive Date: 20091222
  Receipt Date: 20091214
  Transmission Date: 20100525
  Serious: Yes (Other)
  Sender: FDA-Public Use
  Company Number: CA-AMGEN-QUU380247

PATIENT
  Sex: Female

DRUGS (8)
  1. ENBREL [Suspect]
     Indication: RHEUMATOID ARTHRITIS
     Route: 058
     Dates: start: 20091204, end: 20091204
  2. METHOTREXATE [Concomitant]
  3. UNSPECIFIED MEDICATION [Concomitant]
  4. CALCIUM [Concomitant]
  5. VITAMIN D [Concomitant]
  6. FOLIC ACID [Concomitant]
  7. CELEBREX [Concomitant]
  8. REMICADE [Concomitant]
     Route: 042

REACTIONS (4)
  - DEPRESSED MOOD [None]
  - HEART RATE INCREASED [None]
  - PHARYNGEAL OEDEMA [None]
  - TONGUE DISORDER [None]
